FAERS Safety Report 8869162 (Version 1)
Quarter: 2012Q4

REPORT INFORMATION
  Report Type: Spontaneous
  Country: FR (occurrence: None)
  Receive Date: 20121022
  Receipt Date: 20121022
  Transmission Date: 20130627
  Serious: Yes (Death, Congenital Anomaly)
  Sender: FDA-Public Use
  Company Number: DKLU1085327

PATIENT
  Age: 1 Day
  Sex: Female

DRUGS (4)
  1. ONFI [Suspect]
     Indication: PRODUCT USED FOR UNKNOWN INDICATION
     Route: 064
     Dates: start: 20110728, end: 20120118
  2. DEPAKINE [Suspect]
     Indication: PRODUCT USED FOR UNKNOWN INDICATION
     Route: 064
     Dates: start: 20110728, end: 20120118
  3. SPECIAFOLDINE (FOLIC ACID) UNKNOWN [Suspect]
     Indication: PRODUCT USED FOR UNKNOWN INDICATION
     Route: 064
     Dates: start: 20110728, end: 20120118
  4. LEVOTHYROX (LEVOTHYROXINE SODIUM) INFUSION [Suspect]
     Indication: PRODUCT USED FOR UNKNOWN INDICATION
     Route: 064
     Dates: start: 20110128, end: 20120118

REACTIONS (7)
  - Maternal drugs affecting foetus [None]
  - Spina bifida [None]
  - Abortion [None]
  - Meningocele [None]
  - Cerebral ventricle dilatation [None]
  - Arnold-Chiari malformation [None]
  - Foetal chromosome abnormality [None]
